FAERS Safety Report 9908615 (Version 1)
Quarter: 2014Q1

REPORT INFORMATION
  Report Type: Spontaneous
  Country: IT (occurrence: IT)
  Receive Date: 20140219
  Receipt Date: 20140219
  Transmission Date: 20141002
  Serious: Yes (Hospitalization)
  Sender: FDA-Public Use
  Company Number: IT-BAYER-2014-021582

PATIENT
  Age: 53 Year
  Sex: Male
  Weight: 72.11 kg

DRUGS (3)
  1. BETAFERON [Suspect]
     Indication: MULTIPLE SCLEROSIS
     Dosage: 0.25 MG, QOD
     Route: 058
     Dates: start: 19970101, end: 20140102
  2. TAMSULOSIN [Concomitant]
     Indication: BENIGN PROSTATIC HYPERPLASIA
     Dosage: DAILY DOSE .4 MG
     Route: 048
     Dates: start: 20130101, end: 20140102
  3. MANTADAN [Concomitant]
     Dosage: DAILY DOSE 100 MG
     Route: 048
     Dates: start: 20130101, end: 20140102

REACTIONS (2)
  - Panniculitis [Not Recovered/Not Resolved]
  - Cellulitis [Not Recovered/Not Resolved]
